FAERS Safety Report 4621596-0 (Version None)
Quarter: 2005Q1

REPORT INFORMATION
  Report Type: 
  Country: None (occurrence: None)
  Receive Date: 20050328
  Receipt Date: 20041019
  Transmission Date: 20050727
  Serious: Yes (Hospitalization)
  Sender: FDA-Public Use
  Company Number: 9147

PATIENT
  Age: 65 Year
  Sex: Male

DRUGS (7)
  1. RHEUMATREX [Suspect]
     Indication: RHEUMATOID ARTHRITIS
     Dosage: 6 MG WEEKLY
     Route: 048
     Dates: start: 20040304, end: 20040304
  2. RHEUMATREX [Suspect]
     Indication: RHEUMATOID ARTHRITIS
     Dosage: 6 MG WEEKLY
     Route: 048
     Dates: start: 20020101
  3. INFLIXIMAB [Suspect]
     Indication: RHEUMATOID ARTHRITIS
     Dosage: 3 MG/KG
     Route: 042
     Dates: start: 20040325, end: 20040325
  4. ISONIAZID [Concomitant]
  5. PREDONINE [Concomitant]
  6. CLINORIL [Concomitant]
  7. FOLIC ACID [Concomitant]

REACTIONS (2)
  - CHOLANGITIS [None]
  - ESCHERICHIA BACTERAEMIA [None]
